FAERS Safety Report 13998533 (Version 1)
Quarter: 2017Q3

REPORT INFORMATION
  Report Type: Spontaneous
  Country: US (occurrence: US)
  Receive Date: 20170922
  Receipt Date: 20170922
  Transmission Date: 20171128
  Serious: No
  Sender: FDA-Public Use
  Company Number: US-ROCHE-1996436

PATIENT
  Age: 53 Year
  Sex: Female

DRUGS (1)
  1. OCREVUS [Suspect]
     Active Substance: OCRELIZUMAB
     Indication: RELAPSING-REMITTING MULTIPLE SCLEROSIS
     Dosage: 2 300 MG INFUSIONS
     Route: 042
     Dates: start: 20170101

REACTIONS (2)
  - Oral herpes [Unknown]
  - Headache [Unknown]

NARRATIVE: CASE EVENT DATE: 20170101
